FAERS Safety Report 24014971 (Version 4)
Quarter: 2024Q3

REPORT INFORMATION
  Report Type: Spontaneous
  Country: JP (occurrence: JP)
  Receive Date: 20240626
  Receipt Date: 20240717
  Transmission Date: 20241017
  Serious: Yes (Hospitalization, Other)
  Sender: PFIZER
  Company Number: JP-PFIZER INC-PV202400081834

PATIENT
  Age: 81 Year
  Sex: Male
  Weight: 66.5 kg

DRUGS (7)
  1. ELREXFIO [Suspect]
     Active Substance: ELRANATAMAB-BCMM
     Dosage: 12 MG, 1X/DAY
     Route: 058
     Dates: start: 20240611, end: 20240611
  2. ELREXFIO [Suspect]
     Active Substance: ELRANATAMAB-BCMM
     Dosage: 32 MG, 1X/DAY
     Route: 058
     Dates: start: 20240614, end: 20240614
  3. ELREXFIO [Suspect]
     Active Substance: ELRANATAMAB-BCMM
     Dosage: 76 MG
     Route: 058
     Dates: start: 20240618
  4. INDAPAMIDE [Concomitant]
     Active Substance: INDAPAMIDE
     Indication: Hypertension
     Dosage: 1 MG ONCE
  5. BISOPROLOL FUMARATE [Concomitant]
     Active Substance: BISOPROLOL FUMARATE
     Indication: Hypertension
     Dosage: 2.5 MG ONCE
  6. MAGNESIUM OXIDE [Concomitant]
     Active Substance: MAGNESIUM OXIDE
     Indication: Constipation
     Dosage: 500 MG TWICE
  7. PANTETHINE [Concomitant]
     Active Substance: PANTETHINE
     Indication: Constipation
     Dosage: 200 MG TWICE

REACTIONS (3)
  - Cytokine release syndrome [Recovered/Resolved]
  - Interleukin level increased [Unknown]
  - Skin exfoliation [Unknown]

NARRATIVE: CASE EVENT DATE: 20240612
